FAERS Safety Report 20477478 (Version 1)
Quarter: 2022Q1

REPORT INFORMATION
  Report Type: Spontaneous
  Country: DE (occurrence: DE)
  Receive Date: 20220216
  Receipt Date: 20220216
  Transmission Date: 20220423
  Serious: Yes (Congenital Anomaly, Other)
  Sender: FDA-Public Use
  Company Number: DE-EMBRYOTOX-202100299

PATIENT
  Age: 1 Month
  Sex: Male
  Weight: 3.88 kg

DRUGS (6)
  1. SERTRALINE [Suspect]
     Active Substance: SERTRALINE HYDROCHLORIDE
     Indication: Depression
     Dosage: 50 MILLIGRAM, ONCE A DAY
     Route: 064
     Dates: start: 20201126, end: 20210823
  2. FERROUS SULFATE [Concomitant]
     Active Substance: FERROUS SULFATE
     Indication: Iron deficiency
     Dosage: UNK
     Route: 064
  3. FERROUS GLYCINE SULFATE [Concomitant]
     Active Substance: FERROUS GLYCINE SULFATE
     Indication: Iron deficiency
     Dosage: UNK
     Route: 064
  4. DIMENHYDRINATE [Concomitant]
     Active Substance: DIMENHYDRINATE
     Indication: Morning sickness
     Dosage: 150 MILLIGRAM, ONCE A DAY
     Route: 064
  5. FLORADIX EISEN [Concomitant]
     Indication: Iron deficiency
     Dosage: 100 MILLIGRAM, ONCE A DAY
     Route: 064
  6. ACETAMINOPHEN [Concomitant]
     Active Substance: ACETAMINOPHEN
     Indication: Pain
     Dosage: UNK, AS NECESSARY (ONLY, IF REQUIRED)
     Route: 064
     Dates: start: 20201126, end: 20210823

REACTIONS (3)
  - Ventricular septal defect [Unknown]
  - Pulmonary artery stenosis [Unknown]
  - Foetal exposure during pregnancy [Unknown]
